FAERS Safety Report 7362089-X (Version None)
Quarter: 2011Q1

REPORT INFORMATION
  Report Type: 
  Country: None (occurrence: None)
  Receive Date: 20110314
  Receipt Date: 20110314
  Transmission Date: 20110831
  Serious: Yes (Hospitalization)
  Sender: FDA-Public Use
  Company Number: None

PATIENT
  Sex: Female
  Weight: 76.2043 kg

DRUGS (1)
  1. PRIMAXIN [Suspect]
     Indication: INFECTION
     Dosage: 500MG/100ML D5W Q8H IV DRIP
     Route: 041
     Dates: start: 20110309, end: 20110313

REACTIONS (2)
  - CONVULSION [None]
  - TREMOR [None]
